FAERS Safety Report 11735568 (Version 1)
Quarter: 2015Q4

REPORT INFORMATION
  Report Type: Spontaneous
  Country: GB (occurrence: GB)
  Receive Date: 20151113
  Receipt Date: 20151113
  Transmission Date: 20160304
  Serious: Yes (Other)
  Sender: FDA-Public Use
  Company Number: GB-IGSA-IG003648

PATIENT
  Age: 65 Year
  Sex: Female
  Weight: 69 kg

DRUGS (20)
  1. FLEBOGAMMA DIF [Suspect]
     Active Substance: HUMAN IMMUNOGLOBULIN G
     Indication: CHRONIC INFLAMMATORY DEMYELINATING POLYRADICULONEUROPATHY
     Route: 042
     Dates: start: 20151006, end: 20151007
  2. OVESTIN [Concomitant]
     Active Substance: ESTRIOL
  3. CARMELLOSE [Concomitant]
  4. SPIRONOLACTONE. [Concomitant]
     Active Substance: SPIRONOLACTONE
  5. GABAPENTIN. [Concomitant]
     Active Substance: GABAPENTIN
  6. GAVISCON ADVANCE [Concomitant]
     Active Substance: POTASSIUM BICARBONATE\SODIUM ALGINATE
  7. LANSOPRAZOLE. [Concomitant]
     Active Substance: LANSOPRAZOLE
  8. NAPROXEN. [Concomitant]
     Active Substance: NAPROXEN
  9. FLEBOGAMMA DIF [Suspect]
     Active Substance: HUMAN IMMUNOGLOBULIN G
     Indication: CHRONIC INFLAMMATORY DEMYELINATING POLYRADICULONEUROPATHY
     Route: 042
     Dates: start: 20151006, end: 20151007
  10. FLEBOGAMMA DIF [Suspect]
     Active Substance: HUMAN IMMUNOGLOBULIN G
     Indication: CHRONIC INFLAMMATORY DEMYELINATING POLYRADICULONEUROPATHY
     Route: 042
     Dates: start: 201501, end: 201510
  11. AMLODIPINE [Concomitant]
     Active Substance: AMLODIPINE BESYLATE
  12. PRAVASTATIN [Concomitant]
     Active Substance: PRAVASTATIN\PRAVASTATIN SODIUM
  13. ADCAL D3 [Concomitant]
     Active Substance: CALCIUM CARBONATE\CHOLECALCIFEROL
  14. PREDNISOLONE. [Concomitant]
     Active Substance: PREDNISOLONE
  15. BUPRENORPHINE /00444002/ [Concomitant]
     Route: 061
  16. IBANDRONIC ACID [Concomitant]
     Active Substance: IBANDRONIC ACID
  17. DAKTACORT [Concomitant]
     Active Substance: HYDROCORTISONE\MICONAZOLE NITRATE
     Indication: FUNGAL INFECTION
  18. GABAPENTIN. [Concomitant]
     Active Substance: GABAPENTIN
  19. BUPRENORPHINE. [Concomitant]
     Active Substance: BUPRENORPHINE
     Indication: ARTHRALGIA
     Route: 060
  20. AZATHIOPRINE. [Concomitant]
     Active Substance: AZATHIOPRINE

REACTIONS (1)
  - Retinal vein thrombosis [Not Recovered/Not Resolved]

NARRATIVE: CASE EVENT DATE: 20151013
